FAERS Safety Report 5356442-3 (Version None)
Quarter: 2007Q2

REPORT INFORMATION
  Report Type: 
  Country: None (occurrence: None)
  Receive Date: 20070530
  Receipt Date: 20061120
  Transmission Date: 20071010
  Serious: Yes (Hospitalization, Other)
  Sender: FDA-Public Use
  Company Number: US200609000248

PATIENT
  Age: 32 Year
  Sex: Female
  Weight: 58.5 kg

DRUGS (8)
  1. ZYPREXA [Suspect]
     Indication: DEPRESSION
     Dates: start: 20020101
  2. PROZAC [Concomitant]
  3. SROQUEL /UNK/ (QUETIAPINE FUMARATE) [Concomitant]
  4. RISPERDAL /SWE/ (RISPERIDONE) [Concomitant]
  5. CELEXA [Concomitant]
  6. SINEQUAN [Concomitant]
  7. REMERON [Concomitant]
  8. ZOLOFT [Concomitant]

REACTIONS (5)
  - BLOOD CHOLESTEROL INCREASED [None]
  - BLOOD TRIGLYCERIDES INCREASED [None]
  - PANCREATITIS [None]
  - VISION BLURRED [None]
  - WEIGHT DECREASED [None]
